FAERS Safety Report 14046445 (Version 2)
Quarter: 2017Q4

REPORT INFORMATION
  Report Type: Report from Study
  Country: US (occurrence: US)
  Receive Date: 20171005
  Receipt Date: 20171011
  Transmission Date: 20180321
  Serious: Yes (Death, Hospitalization)
  Sender: FDA-Public Use
  Company Number: US-ACTELION-A-US2017-160500

PATIENT
  Age: 64 Year
  Sex: Female
  Weight: 87.75 kg

DRUGS (1)
  1. VELETRI [Suspect]
     Active Substance: EPOPROSTENOL
     Indication: PULMONARY ARTERIAL HYPERTENSION
     Route: 042

REACTIONS (4)
  - Cough [Unknown]
  - Death [Fatal]
  - Loss of consciousness [Unknown]
  - Nausea [Unknown]

NARRATIVE: CASE EVENT DATE: 20170729
